FAERS Safety Report 6408149-9 (Version None)
Quarter: 2009Q4

REPORT INFORMATION
  Report Type: 
  Country: None (occurrence: None)
  Receive Date: 20091021
  Receipt Date: 20091012
  Transmission Date: 20100525
  Serious: Yes (Hospitalization)
  Sender: FDA-Public Use
  Company Number: AT-WYE-G04549909

PATIENT
  Age: 42 Year
  Sex: Female
  Weight: 60 kg

DRUGS (9)
  1. TEMESTA [Suspect]
     Dosage: 2,5 MG, DAILY DOSE 10 MG
     Dates: start: 20090408
  2. CITALOPRAM HYDROBROMIDE [Concomitant]
     Indication: PERSONALITY DISORDER
  3. CITALOPRAM HYDROBROMIDE [Concomitant]
     Indication: DEPRESSION
  4. CITALOPRAM HYDROBROMIDE [Concomitant]
     Indication: SUICIDAL IDEATION
  5. LAMICTAL [Concomitant]
  6. NOZINAN [Suspect]
     Dosage: 25 MG, DAILY DOSE 50 MG
     Dates: start: 20090516, end: 20090516
  7. RISPERDAL [Suspect]
     Dates: start: 20090414, end: 20090521
  8. EFFEXOR XR [Concomitant]
     Dosage: 37.5 MG, DAILY DOSE 225 MG
  9. SEROQUEL [Suspect]
     Dosage: 200 MG, DAILY DOSE 800 MG
     Dates: start: 20090505, end: 20090528

REACTIONS (1)
  - ILEUS PARALYTIC [None]
